FAERS Safety Report 7602112-8 (Version None)
Quarter: 2011Q3

REPORT INFORMATION
  Report Type: 
  Country: None (occurrence: None)
  Receive Date: 20110711
  Receipt Date: 20110711
  Transmission Date: 20111222
  Serious: Yes (Other)
  Sender: FDA-Public Use
  Company Number: None

PATIENT
  Age: 63 Year
  Sex: Male
  Weight: 119.74 kg

DRUGS (1)
  1. TESTIM [Suspect]
     Indication: HYPOGONADISM
     Dosage: 1% 5 GRAMS
     Route: 062
     Dates: start: 20100930, end: 20110113

REACTIONS (2)
  - PRURITUS [None]
  - JOINT SWELLING [None]
